FAERS Safety Report 6885825-5 (Version None)
Quarter: 2010Q3

REPORT INFORMATION
  Report Type: 
  Country: None (occurrence: None)
  Receive Date: 20100729
  Receipt Date: 20080410
  Transmission Date: 20110219
  Serious: Yes (Other)
  Sender: FDA-Public Use
  Company Number: US-PFIZER INC-2008014229

PATIENT
  Age: 41 Year
  Sex: Male
  Weight: 97.727 kg

DRUGS (2)
  1. CELEBREX [Suspect]
     Indication: BACK PAIN
     Route: 048
     Dates: start: 20080211
  2. SKELAXIN [Concomitant]
     Route: 048
     Dates: start: 20080211

REACTIONS (1)
  - EPISTAXIS [None]
